FAERS Safety Report 23913730 (Version 2)
Quarter: 2024Q2

REPORT INFORMATION
  Report Type: Spontaneous
  Country: AU (occurrence: AU)
  Receive Date: 20240529
  Receipt Date: 20240610
  Transmission Date: 20240716
  Serious: Yes (Other)
  Sender: FDA-Public Use
  Company Number: AU-002147023-NVSC2024AU110425

PATIENT
  Sex: Male

DRUGS (1)
  1. LUCENTIS [Suspect]
     Active Substance: RANIBIZUMAB
     Indication: Diabetic retinopathy
     Dosage: UNK (RIGHT EYE COMPASSIONATE MONTHLY INJECTIONS)
     Route: 065

REACTIONS (3)
  - Macular oedema [Unknown]
  - Blood glucose fluctuation [Unknown]
  - Diabetic retinopathy [Unknown]
